FAERS Safety Report 11769794 (Version 5)
Quarter: 2019Q3

REPORT INFORMATION
  Report Type: Report from Study
  Country: US (occurrence: US)
  Receive Date: 20151123
  Receipt Date: 20190905
  Transmission Date: 20191004
  Serious: Yes (Hospitalization, Other)
  Sender: FDA-Public Use
  Company Number: US-SA-2015SA183729

PATIENT
  Age: 77 Year
  Sex: Female

DRUGS (7)
  1. THYROXINE [Concomitant]
     Active Substance: LEVOTHYROXINE
     Indication: THYROID DISORDER
     Dosage: UNK UNK, UNK
     Route: 065
  2. PRAVASTATIN. [Concomitant]
     Active Substance: PRAVASTATIN
     Dosage: UNK UNK, UNK
     Route: 065
  3. VITAMIN D NOS [Concomitant]
     Active Substance: VITAMIN D NOS
     Dosage: UNK UNK, UNK
     Route: 065
  4. INSULIN GLARGINE [Suspect]
     Active Substance: INSULIN GLARGINE
     Indication: TYPE 2 DIABETES MELLITUS
     Dosage: 28 DF, HS
     Route: 051
  5. INSULIN GLARGINE [Suspect]
     Active Substance: INSULIN GLARGINE
     Dosage: 58 DF, QD
     Route: 058
  6. LAMOTRIGINE. [Concomitant]
     Active Substance: LAMOTRIGINE
     Indication: SEIZURE
     Route: 065
  7. INSULIN GLARGINE [Suspect]
     Active Substance: INSULIN GLARGINE
     Dosage: 50 OR 60 UNITS, HS
     Route: 058

REACTIONS (35)
  - Intracranial aneurysm [Recovered/Resolved]
  - Insomnia [Unknown]
  - Inflammation [Unknown]
  - Arthritis [Unknown]
  - Alopecia [Not Recovered/Not Resolved]
  - Nephropathy [Unknown]
  - Chronic kidney disease [Not Recovered/Not Resolved]
  - Carpal tunnel syndrome [Unknown]
  - Fall [Recovered/Resolved]
  - Pain in extremity [Not Recovered/Not Resolved]
  - Hallucination [Unknown]
  - Somnolence [Unknown]
  - Dupuytren^s contracture [Unknown]
  - Haemorrhage [Unknown]
  - Spinal disorder [Unknown]
  - Viral infection [Unknown]
  - Pain [Recovered/Resolved]
  - Dermatitis [Not Recovered/Not Resolved]
  - Cough [Unknown]
  - Musculoskeletal pain [Recovered/Resolved]
  - Muscle strain [Recovered/Resolved]
  - Anxiety disorder [Unknown]
  - Limb discomfort [Unknown]
  - Hyperglycaemia [Unknown]
  - Condition aggravated [Unknown]
  - Anxiety [Unknown]
  - Memory impairment [Unknown]
  - Angiopathy [Unknown]
  - Product dose omission [Unknown]
  - Syncope [Unknown]
  - Arthropathy [Unknown]
  - Arthropathy [Recovered/Resolved]
  - Dysphonia [Unknown]
  - Depression [Unknown]
  - Malaise [Unknown]

NARRATIVE: CASE EVENT DATE: 2005
